FAERS Safety Report 10215055 (Version 2)
Quarter: 2014Q2

REPORT INFORMATION
  Report Type: Spontaneous
  Country: GB (occurrence: GB)
  Receive Date: 20140603
  Receipt Date: 20140618
  Transmission Date: 20141212
  Serious: Yes (Other)
  Sender: FDA-Public Use
  Company Number: GB-ACTAVIS-2014-11487

PATIENT
  Age: 83 Year
  Sex: Female

DRUGS (14)
  1. CLOPIDOGREL BISULFATE (UNKNOWN) [Suspect]
     Indication: ATRIAL FIBRILLATION
     Dosage: 75 MG, DAILY
     Route: 048
     Dates: start: 20140211, end: 20140302
  2. CLOPIDOGREL BISULFATE (UNKNOWN) [Suspect]
     Dosage: 75 MG, BID
     Route: 048
     Dates: start: 20140322
  3. BISOPROLOL [Concomitant]
     Indication: HYPERTENSION
     Dosage: 5 MG, UNKNOWN
     Dates: start: 20140212
  4. BISOPROLOL [Concomitant]
     Dosage: 2.5 MG, UNK
     Route: 065
  5. CO-AMILOFRUSE [Concomitant]
     Indication: HYPERTENSION
     Dosage: UNK; DOSE: 2.5 MG/ 20MG
     Route: 065
     Dates: start: 20140211, end: 20140321
  6. DARIFENACIN [Concomitant]
     Indication: URINARY INCONTINENCE
     Dosage: 15 MG, UNKNOWN
     Route: 065
     Dates: start: 20140203
  7. GLIMEPIRIDE [Concomitant]
     Indication: DIABETES MELLITUS
     Dosage: 3 MG, UNKNOWN
     Route: 065
     Dates: start: 20130322
  8. ISOSORBIDE MONONITRATE [Concomitant]
     Indication: MYOCARDIAL INFARCTION
     Dosage: UNK; DOSE: 60 MG MR
     Route: 065
     Dates: start: 20140211, end: 20140228
  9. LACIDIPINE [Concomitant]
     Indication: HYPERTENSION
     Dosage: 4 MG, UNKNOWN
     Route: 065
     Dates: start: 20120911
  10. LANSOPRAZOLE [Concomitant]
     Indication: GASTROINTESTINAL DISORDER
     Dosage: 30 MG, UNKNOWN
     Route: 065
     Dates: start: 20140211
  11. LAXIDO                             /06401201/ [Concomitant]
     Indication: IRRITABLE BOWEL SYNDROME
     Dosage: 13.8 MG, UNKNOWN
     Route: 065
     Dates: start: 20130815
  12. LOSARTAN [Concomitant]
     Indication: HYPERTENSION
     Dosage: 100 MG, UNKNOWN
     Route: 065
     Dates: start: 20120911
  13. TRANYLCYPROMINE [Concomitant]
     Indication: DEPRESSION
     Dosage: 30 MG, UNKNOWN
     Route: 065
     Dates: start: 20120328
  14. TRIFLUOPERAZINE [Concomitant]
     Indication: ANXIETY
     Dosage: 1 MG, UNKNOWN
     Route: 065
     Dates: start: 20120328

REACTIONS (2)
  - Haematochezia [Recovered/Resolved]
  - Off label use [Unknown]
